FAERS Safety Report 6383861-9 (Version None)
Quarter: 2009Q4

REPORT INFORMATION
  Report Type: 
  Country: None (occurrence: None)
  Receive Date: 20091001
  Receipt Date: 20090924
  Transmission Date: 20100525
  Serious: Yes (Hospitalization)
  Sender: FDA-Public Use
  Company Number: PR-GENENTECH-288377

PATIENT
  Sex: Male

DRUGS (16)
  1. RITUXIMAB [Suspect]
     Indication: B-CELL LYMPHOMA
     Dosage: 375 MG/M2, UNK
     Route: 042
     Dates: start: 20090727
  2. OXALIPLATIN [Suspect]
     Indication: B-CELL LYMPHOMA
     Dosage: 100 MG/M2, UNK
     Route: 042
     Dates: start: 20090728
  3. GEMCITABINE [Suspect]
     Indication: B-CELL LYMPHOMA
     Dosage: 1000 MG/M2, UNK
     Route: 042
     Dates: start: 20090728
  4. PEGFILGRASTIM [Suspect]
     Indication: B-CELL LYMPHOMA
     Dosage: 6 MG, UNK
     Route: 058
     Dates: start: 20090729
  5. REGULAR INSULIN [Concomitant]
     Indication: DRUG USE FOR UNKNOWN INDICATION
  6. MAGNESIUM OXIDE [Concomitant]
     Indication: DRUG USE FOR UNKNOWN INDICATION
     Dosage: 800 MG, BID
     Route: 048
     Dates: start: 20090702
  7. JANUMET [Concomitant]
     Indication: DRUG USE FOR UNKNOWN INDICATION
     Dosage: UNK
     Route: 048
  8. MICAFUNGIN [Concomitant]
     Indication: DRUG USE FOR UNKNOWN INDICATION
     Dosage: 150 MG, QD
     Route: 042
     Dates: start: 20090705
  9. ZOFRAN [Concomitant]
     Indication: DRUG USE FOR UNKNOWN INDICATION
     Dosage: 8 MG, Q12H
     Route: 048
     Dates: start: 20090327
  10. COMPAZINE [Concomitant]
     Indication: NAUSEA
     Dosage: 10 MG, PRN
     Route: 048
     Dates: start: 20090327
  11. COMPAZINE [Concomitant]
     Indication: VOMITING
  12. PROTONIX [Concomitant]
     Indication: DRUG USE FOR UNKNOWN INDICATION
     Dosage: 40 MG, QD
     Route: 048
     Dates: start: 20090602
  13. ACTOS [Concomitant]
     Indication: DRUG USE FOR UNKNOWN INDICATION
     Dosage: 30 MG, QD
     Route: 048
  14. BACTRIM DS [Concomitant]
     Indication: DRUG USE FOR UNKNOWN INDICATION
     Dosage: 1 TABLET, 2/WEEK
     Dates: start: 20090602
  15. VFEND [Concomitant]
     Indication: DRUG USE FOR UNKNOWN INDICATION
     Dosage: 300 MG, BID
     Route: 048
     Dates: start: 20090707
  16. XANAX [Concomitant]
     Indication: ANXIETY
     Dosage: 0.25 MG, PRN
     Route: 048
     Dates: start: 20090601

REACTIONS (2)
  - FEBRILE NEUTROPENIA [None]
  - PLEURAL EFFUSION [None]
